FAERS Safety Report 8204427-1 (Version None)
Quarter: 2012Q1

REPORT INFORMATION
  Report Type: 
  Country: None (occurrence: None)
  Receive Date: 20120313
  Receipt Date: 20120308
  Transmission Date: 20120608
  Serious: Yes (Death)
  Sender: FDA-Public Use
  Company Number: BE-CELGENEUS-013-21880-12022126

PATIENT
  Sex: Male
  Weight: 106 kg

DRUGS (40)
  1. REVLIMID [Suspect]
     Dosage: 25 MILLIGRAM
     Dates: start: 20100621, end: 20100712
  2. REVLIMID [Suspect]
     Dosage: 10 MILLIGRAM
     Dates: start: 20101108, end: 20101128
  3. REVLIMID [Suspect]
     Dosage: 15 MILLIGRAM
     Dates: start: 20110106, end: 20110126
  4. REVLIMID [Suspect]
     Dosage: 15 MILLIGRAM
     Dates: start: 20110401, end: 20110421
  5. REVLIMID [Suspect]
     Dosage: 25 MILLIGRAM
     Dates: start: 20100913, end: 20101003
  6. REVLIMID [Suspect]
     Dosage: 15 MILLIGRAM
     Dates: start: 20110303, end: 20110323
  7. DEXAMETHASONE [Suspect]
     Route: 048
     Dates: start: 20101108, end: 20101205
  8. CYCLOPHOSPHAMIDE [Suspect]
     Indication: MULTIPLE MYELOMA
     Dosage: 100 MILLIGRAM
     Route: 048
     Dates: start: 20101108, end: 20101128
  9. CYCLOPHOSPHAMIDE [Suspect]
     Dosage: 100 MILLIGRAM
     Route: 048
     Dates: start: 20110503, end: 20110523
  10. LYRICA [Concomitant]
     Route: 065
  11. DUOVENT [Concomitant]
     Route: 065
  12. REVLIMID [Suspect]
     Dosage: 15 MILLIGRAM
     Dates: start: 20101206, end: 20101226
  13. REVLIMID [Suspect]
     Dosage: 15 MILLIGRAM
     Dates: start: 20110203, end: 20110223
  14. REVLIMID [Suspect]
     Dosage: 15 MILLIGRAM
     Dates: start: 20110503, end: 20110523
  15. DEXAMETHASONE [Suspect]
     Route: 048
     Dates: start: 20100625, end: 20100718
  16. DEXAMETHASONE [Suspect]
     Route: 048
     Dates: start: 20110303, end: 20110317
  17. SPIRIVA [Concomitant]
     Route: 065
  18. SYMBICORT [Concomitant]
     Route: 065
  19. DEXAMETHASONE [Suspect]
     Route: 048
     Dates: start: 20100621, end: 20100624
  20. DEXAMETHASONE [Suspect]
     Route: 048
     Dates: start: 20100816, end: 20100819
  21. DEXAMETHASONE [Suspect]
     Route: 048
     Dates: start: 20101206, end: 20110105
  22. CYCLOPHOSPHAMIDE [Suspect]
     Dosage: 100 MILLIGRAM
     Route: 048
     Dates: start: 20110303, end: 20110323
  23. DEXAMETHASONE [Suspect]
     Indication: MULTIPLE MYELOMA
     Dosage: 5.3333 MILLIGRAM
     Route: 048
     Dates: start: 20100426, end: 20100430
  24. DEXAMETHASONE [Suspect]
     Route: 048
     Dates: start: 20100719, end: 20100722
  25. DEXAMETHASONE [Suspect]
     Route: 048
     Dates: start: 20100913, end: 20100916
  26. ASPIRIN [Concomitant]
     Indication: THROMBOSIS PROPHYLAXIS
     Dosage: 100 MILLIGRAM
     Route: 065
  27. PANTIUM [Concomitant]
     Route: 065
  28. REVLIMID [Suspect]
     Indication: MULTIPLE MYELOMA
     Dosage: 25 MILLIGRAM
     Dates: start: 20100426, end: 20100516
  29. REVLIMID [Suspect]
     Dosage: 25 MILLIGRAM
     Dates: start: 20100521, end: 20100610
  30. DEXAMETHASONE [Suspect]
     Route: 048
     Dates: start: 20100521, end: 20100524
  31. DEXAMETHASONE [Suspect]
     Route: 048
     Dates: start: 20110203, end: 20110206
  32. CYCLOPHOSPHAMIDE [Suspect]
     Dosage: 100 MILLIGRAM
     Route: 048
     Dates: start: 20101206, end: 20101226
  33. CYCLOPHOSPHAMIDE [Suspect]
     Dosage: 100 MILLIGRAM
     Route: 048
     Dates: start: 20110203, end: 20110223
  34. CYCLOPHOSPHAMIDE [Suspect]
     Dosage: 100 MILLIGRAM
     Route: 048
     Dates: start: 20110401, end: 20110421
  35. REVLIMID [Suspect]
     Dosage: 25 MILLIGRAM
     Dates: start: 20100719, end: 20100808
  36. REVLIMID [Suspect]
     Dosage: 25 MILLIGRAM
     Dates: start: 20100816, end: 20100905
  37. DEXAMETHASONE [Suspect]
     Route: 048
     Dates: start: 20110106, end: 20110202
  38. DEXAMETHASONE [Suspect]
     Route: 048
     Dates: start: 20110401, end: 20110415
  39. DEXAMETHASONE [Suspect]
     Route: 048
     Dates: start: 20110503, end: 20110517
  40. CYCLOPHOSPHAMIDE [Suspect]
     Dosage: 100 MILLIGRAM
     Route: 048
     Dates: start: 20110106, end: 20110126

REACTIONS (1)
  - LUNG SQUAMOUS CELL CARCINOMA STAGE III [None]
